FAERS Safety Report 4725996-X (Version None)
Quarter: 2005Q3

REPORT INFORMATION
  Report Type: 
  Country: None (occurrence: None)
  Receive Date: 20050722
  Receipt Date: 20050722
  Transmission Date: 20060218
  Serious: Yes (Hospitalization)
  Sender: FDA-Public Use
  Company Number: None

PATIENT
  Sex: Female
  Weight: 97.977 kg

DRUGS (2)
  1. GEMZAR [Suspect]
     Indication: BREAST CANCER METASTATIC
     Dates: start: 20041009
  2. HERCEPTIN [Suspect]
     Dates: start: 20050601

REACTIONS (1)
  - MASTECTOMY [None]
